FAERS Safety Report 7050188-1 (Version None)
Quarter: 2010Q4

REPORT INFORMATION
  Report Type: 
  Country: None (occurrence: None)
  Receive Date: 20101018
  Receipt Date: 20101013
  Transmission Date: 20110411
  Serious: Yes (Death, Hospitalization)
  Sender: FDA-Public Use
  Company Number: US-CELGENEUS-163-21880-10092874

PATIENT
  Sex: Male

DRUGS (1)
  1. REVLIMID [Suspect]
     Route: 048
     Dates: start: 20100601, end: 20100907

REACTIONS (4)
  - DRUG INEFFECTIVE [None]
  - HAEMATOCRIT DECREASED [None]
  - INFECTION [None]
  - SEPSIS [None]
